FAERS Safety Report 6841249-8 (Version None)
Quarter: 2010Q3

REPORT INFORMATION
  Report Type: 
  Country: None (occurrence: None)
  Receive Date: 20100714
  Receipt Date: 20070630
  Transmission Date: 20110219
  Serious: No
  Sender: FDA-Public Use
  Company Number: US-PFIZER INC-2007055564

PATIENT
  Sex: Male
  Weight: 100.7 kg

DRUGS (13)
  1. CHANTIX [Suspect]
     Indication: SMOKING CESSATION THERAPY
     Route: 048
     Dates: start: 20070601
  2. FUROSEMIDE [Concomitant]
  3. COZAAR [Concomitant]
  4. SYNTHROID [Concomitant]
  5. ATENOLOL [Concomitant]
  6. PRILOSEC [Concomitant]
  7. ZETIA [Concomitant]
  8. FOLIC ACID [Concomitant]
  9. NORVASC [Concomitant]
  10. ACETYLSALICYLIC ACID [Concomitant]
  11. RELAFEN [Concomitant]
  12. PRAVACHOL [Concomitant]
  13. METHOTREXATE [Concomitant]
     Route: 051

REACTIONS (4)
  - ABDOMINAL PAIN UPPER [None]
  - CONSTIPATION [None]
  - FEELING HOT [None]
  - FLATULENCE [None]
